FAERS Safety Report 4314235-X (Version None)
Quarter: 2004Q1

REPORT INFORMATION
  Report Type: 
  Country: None (occurrence: None)
  Receive Date: 20040309
  Receipt Date: 20040309
  Transmission Date: 20041129
  Serious: Yes (Hospitalization)
  Sender: FDA-Public Use
  Company Number: None

PATIENT
  Sex: Female
  Weight: 105 kg

DRUGS (9)
  1. GEMCITABINE [Suspect]
     Indication: OVARIAN CANCER
     Dosage: 1000 MG/M2 (DAYS 1 AND 8) - IV
     Route: 042
     Dates: start: 20040130
  2. CARBOPLATIN [Suspect]
     Indication: OVARIAN CANCER
     Dosage: AUC 6 DAY (DAY 8) IV
     Route: 042
     Dates: start: 20040206
  3. LOVENOX [Concomitant]
  4. PREVACID [Concomitant]
  5. EFFEXOR XR [Concomitant]
  6. COLACE [Concomitant]
  7. FERROUS SULFATE TAB [Concomitant]
  8. AMBIEN [Concomitant]
  9. COUMADIN [Concomitant]

REACTIONS (3)
  - ANAEMIA [None]
  - DEEP VEIN THROMBOSIS [None]
  - THROMBOCYTOPENIA [None]
